FAERS Safety Report 17187949 (Version 1)
Quarter: 2019Q4

REPORT INFORMATION
  Report Type: Spontaneous
  Country: NL (occurrence: NL)
  Receive Date: 20191221
  Receipt Date: 20191221
  Transmission Date: 20200122
  Serious: Yes (Life-Threatening)
  Sender: FDA-Public Use
  Company Number: NL-009507513-1912NLD007782

PATIENT
  Sex: Female

DRUGS (4)
  1. UTROGESTAN [Concomitant]
     Active Substance: PROGESTERONE
     Dosage: 3DD1
  2. ESTRADIOL. [Concomitant]
     Active Substance: ESTRADIOL
     Dosage: 2DD1
  3. AERIUS (DESLORATADINE) [Suspect]
     Active Substance: DESLORATADINE
     Indication: PRURITUS
     Dosage: TABLET, 5 MG (MILLIGRAM), 1
     Dates: start: 20191124
  4. AERIUS (DESLORATADINE) [Suspect]
     Active Substance: DESLORATADINE
     Indication: HYPERSENSITIVITY

REACTIONS (4)
  - Throat tightness [Recovered/Resolved]
  - Dyspnoea [Recovered/Resolved]
  - Exposure during pregnancy [Unknown]
  - Swollen tongue [Recovered/Resolved]
